FAERS Safety Report 20037695 (Version 1)
Quarter: 2021Q4

REPORT INFORMATION
  Report Type: Spontaneous
  Country: GB (occurrence: GB)
  Receive Date: 20211105
  Receipt Date: 20211105
  Transmission Date: 20220303
  Serious: Yes (Death)
  Sender: FDA-Public Use
  Company Number: GB-PFIZER INC-202101490592

PATIENT

DRUGS (4)
  1. TOZINAMERAN [Suspect]
     Active Substance: TOZINAMERAN
     Indication: COVID-19 immunisation
     Dosage: DOSE 2, SINGLE
     Route: 064
     Dates: start: 20210727, end: 20210727
  2. TOZINAMERAN [Suspect]
     Active Substance: TOZINAMERAN
     Dosage: DOSE 1, SINGLE
     Route: 064
     Dates: start: 20210526, end: 20210526
  3. SERTRALINE HYDROCHLORIDE [Suspect]
     Active Substance: SERTRALINE HYDROCHLORIDE
     Indication: Anxiety
     Dosage: 50 MG, 1X/DAY
     Route: 064
     Dates: start: 20201030
  4. FOLIC ACID [Concomitant]
     Active Substance: FOLIC ACID
     Dosage: 400 UG, 1X/DAY
     Dates: start: 202010

REACTIONS (4)
  - Maternal exposure during pregnancy [Fatal]
  - Hypoplastic left heart syndrome [Fatal]
  - Atrioventricular septal defect [Fatal]
  - Atrial septal defect [Fatal]

NARRATIVE: CASE EVENT DATE: 20210101
